FAERS Safety Report 17488399 (Version 1)
Quarter: 2020Q1

REPORT INFORMATION
  Report Type: Spontaneous
  Country: US (occurrence: US)
  Receive Date: 20200220
  Receipt Date: 20200220
  Transmission Date: 20200409
  Serious: Yes (Hospitalization)
  Sender: FDA-Public Use
  Company Number: None

PATIENT
  Age: 60 Year
  Sex: Male

DRUGS (2)
  1. NEULASTA [Concomitant]
     Active Substance: PEGFILGRASTIM
     Indication: NEUTROPENIA
  2. FULPHILA [Suspect]
     Active Substance: PEGFILGRASTIM-JMDB
     Indication: NEUTROPENIA
     Dosage: ?          OTHER DOSE:1 SYR- AFTER CHEMO;OTHER FREQUENCY:ONE DOSE;?
     Route: 058
     Dates: start: 20200208

REACTIONS (2)
  - Neoplasm [None]
  - Surgery [None]

NARRATIVE: CASE EVENT DATE: 20200217
